FAERS Safety Report 6014968-3 (Version None)
Quarter: 2008Q4

REPORT INFORMATION
  Report Type: 
  Country: None (occurrence: None)
  Receive Date: 20081219
  Receipt Date: 20081110
  Transmission Date: 20090506
  Serious: Yes (Other)
  Sender: FDA-Public Use
  Company Number: IT-GENENTECH-251605

PATIENT

DRUGS (6)
  1. HERCEPTIN [Suspect]
     Indication: BREAST CANCER METASTATIC
     Dosage: UNK, UNK
     Route: 065
     Dates: start: 20010515, end: 20060615
  2. VINORELBINE [Suspect]
     Indication: BREAST CANCER METASTATIC
     Route: 065
  3. DOCETAXEL [Suspect]
     Indication: BREAST CANCER METASTATIC
     Route: 065
  4. PACLITAXEL [Suspect]
     Indication: BREAST CANCER METASTATIC
     Route: 065
  5. DOXORUBICIN HCL [Suspect]
     Indication: BREAST CANCER METASTATIC
  6. GEMCITABINE HCL [Suspect]
     Indication: BREAST CANCER METASTATIC
     Route: 065

REACTIONS (1)
  - BLOOD BILIRUBIN INCREASED [None]
